FAERS Safety Report 14466220 (Version 2)
Quarter: 2018Q1

REPORT INFORMATION
  Report Type: Report from Study
  Country: None (occurrence: BR)
  Receive Date: 20180131
  Receipt Date: 20180308
  Transmission Date: 20180509
  Serious: Yes (Other)
  Sender: FDA-Public Use
  Company Number: BR-ABBVIE-17K-020-2120972-00

PATIENT
  Age: 48 Year
  Sex: Female
  Weight: 67 kg

DRUGS (2)
  1. HUMIRA [Suspect]
     Active Substance: ADALIMUMAB
     Indication: ANKYLOSING SPONDYLITIS
     Route: 058
     Dates: start: 20150101
  2. HUMIRA [Suspect]
     Active Substance: ADALIMUMAB
     Route: 058
     Dates: start: 20180222

REACTIONS (21)
  - Teeth brittle [Recovering/Resolving]
  - Tooth infection [Not Recovered/Not Resolved]
  - Pharyngitis [Recovered/Resolved]
  - Foot fracture [Not Recovered/Not Resolved]
  - Tooth infection [Recovered/Resolved]
  - Sinusitis [Recovered/Resolved]
  - Immunodeficiency [Not Recovered/Not Resolved]
  - Malaise [Recovered/Resolved]
  - Urinary tract infection [Not Recovered/Not Resolved]
  - Skin papilloma [Not Recovered/Not Resolved]
  - Tooth disorder [Recovering/Resolving]
  - Tooth infection [Recovered/Resolved]
  - Cartilage atrophy [Not Recovered/Not Resolved]
  - Candida infection [Not Recovered/Not Resolved]
  - Device dislocation [Recovering/Resolving]
  - Gait disturbance [Not Recovered/Not Resolved]
  - Weight decreased [Not Recovered/Not Resolved]
  - Device dislocation [Not Recovered/Not Resolved]
  - Device dislocation [Not Recovered/Not Resolved]
  - Trigeminal neuralgia [Not Recovered/Not Resolved]
  - Asthenia [Not Recovered/Not Resolved]

NARRATIVE: CASE EVENT DATE: 2016
